FAERS Safety Report 20821922 (Version 3)
Quarter: 2022Q3

REPORT INFORMATION
  Report Type: Spontaneous
  Country: US (occurrence: US)
  Receive Date: 20220512
  Receipt Date: 20220801
  Transmission Date: 20221026
  Serious: Yes (Other)
  Sender: FDA-Public Use
  Company Number: US-JNJFOC-20220521034

PATIENT
  Age: 8 Decade
  Sex: Female

DRUGS (18)
  1. ELMIRON [Suspect]
     Active Substance: PENTOSAN POLYSULFATE SODIUM
     Indication: Cystitis interstitial
     Dosage: DAILY
     Route: 048
     Dates: start: 2008, end: 2011
  2. ELMIRON [Suspect]
     Active Substance: PENTOSAN POLYSULFATE SODIUM
     Dosage: DAILY
     Route: 048
     Dates: start: 2011, end: 2012
  3. ELMIRON [Suspect]
     Active Substance: PENTOSAN POLYSULFATE SODIUM
     Dosage: DAILY
     Route: 048
     Dates: start: 201208, end: 201210
  4. ELMIRON [Suspect]
     Active Substance: PENTOSAN POLYSULFATE SODIUM
     Dosage: DAILY
     Route: 048
     Dates: start: 201211, end: 2015
  5. ELMIRON [Suspect]
     Active Substance: PENTOSAN POLYSULFATE SODIUM
     Route: 048
     Dates: end: 2018
  6. ELMIRON [Suspect]
     Active Substance: PENTOSAN POLYSULFATE SODIUM
     Route: 048
     Dates: end: 2019
  7. DIAZEPAM [Concomitant]
     Active Substance: DIAZEPAM
     Indication: Cystitis interstitial
     Dates: start: 2009
  8. DIAZEPAM [Concomitant]
     Active Substance: DIAZEPAM
     Indication: Inflammation
     Dates: start: 2017, end: 2019
  9. TRAMADOL [Concomitant]
     Active Substance: TRAMADOL
     Indication: Cystitis interstitial
     Dates: start: 2015
  10. ESTRADIOL [Concomitant]
     Active Substance: ESTRADIOL
     Indication: Hormone replacement therapy
     Dates: start: 2019
  11. ESTRADIOL [Concomitant]
     Active Substance: ESTRADIOL
     Indication: Cystitis interstitial
  12. PYRIDIUM [Concomitant]
     Active Substance: PHENAZOPYRIDINE
     Indication: Bladder pain
     Dates: start: 2018
  13. AMLODIPINE BESYLATE [Concomitant]
     Active Substance: AMLODIPINE BESYLATE
     Indication: Hypertension
     Dates: start: 2011
  14. HYDROXYZINE [Concomitant]
     Active Substance: HYDROXYZINE HYDROCHLORIDE
     Indication: Oedema
     Dates: start: 2019
  15. LABETALOL [Concomitant]
     Active Substance: LABETALOL\LABETALOL HYDROCHLORIDE
     Indication: Hypertension
     Dates: start: 2012
  16. LOSARTAN [Concomitant]
     Active Substance: LOSARTAN
     Indication: Hypertension
     Dates: start: 2011
  17. NAPROXEN [Concomitant]
     Active Substance: NAPROXEN
     Indication: Muscle relaxant therapy
     Dates: start: 2014, end: 2021
  18. HYDROCHLOROTHIAZIDE [Concomitant]
     Active Substance: HYDROCHLOROTHIAZIDE
     Indication: Oedema
     Dates: start: 2018

REACTIONS (1)
  - Maculopathy [Unknown]

NARRATIVE: CASE EVENT DATE: 20200101
